FAERS Safety Report 8455935-X (Version None)
Quarter: 2012Q2

REPORT INFORMATION
  Report Type: 
  Country: None (occurrence: None)
  Receive Date: 20120614
  Receipt Date: 20120608
  Transmission Date: 20120825
  Serious: Yes (Other)
  Sender: FDA-Public Use
  Company Number: DSA_55714_2012

PATIENT
  Sex: Male

DRUGS (4)
  1. XENAZINE [Suspect]
     Indication: HUNTINGTON'S DISEASE
     Dosage: (12.5 MG IN AM AND NOON AND 25 MG IN PM; 50 MG DAILY ORAL)
     Route: 048
     Dates: start: 20100504, end: 20120315
  2. CITALOPRAM HYDROBROMIDE [Concomitant]
  3. CLONAZEPAM [Concomitant]
  4. OLANZAPINE [Concomitant]

REACTIONS (4)
  - DYSPHAGIA [None]
  - DISEASE PROGRESSION [None]
  - CHOKING [None]
  - HUNTINGTON'S DISEASE [None]
